FAERS Safety Report 4639566-5 (Version None)
Quarter: 2005Q2

REPORT INFORMATION
  Report Type: 
  Country: None (occurrence: None)
  Receive Date: 20050328
  Receipt Date: 20050211
  Transmission Date: 20051028
  Serious: No
  Sender: FDA-Public Use
  Company Number: USA050290563

PATIENT
  Age: 38 Year
  Sex: Female

DRUGS (2)
  1. STRATTERA [Suspect]
     Dosage: 25 MG/1 DAY
  2. BUSPAR [Concomitant]

REACTIONS (1)
  - SOMNOLENCE [None]
